FAERS Safety Report 7523696-4 (Version None)
Quarter: 2011Q2

REPORT INFORMATION
  Report Type: 
  Country: None (occurrence: None)
  Receive Date: 20110603
  Receipt Date: 20110526
  Transmission Date: 20111010
  Serious: Yes (Other)
  Sender: FDA-Public Use
  Company Number: FR-SANOFI-AVENTIS-2011SA034220

PATIENT
  Age: 74 Year
  Sex: Male

DRUGS (1)
  1. LANTUS [Suspect]
     Dates: start: 20060101

REACTIONS (1)
  - RENAL CELL CARCINOMA [None]
